FAERS Safety Report 7540964-0 (Version None)
Quarter: 2011Q2

REPORT INFORMATION
  Report Type: 
  Country: None (occurrence: None)
  Receive Date: 20110610
  Receipt Date: 20110602
  Transmission Date: 20111010
  Serious: Yes (Hospitalization)
  Sender: FDA-Public Use
  Company Number: US-MPIJNJ-2011-02073

PATIENT
  Sex: Female
  Weight: 114.4 kg

DRUGS (2)
  1. VELCADE [Suspect]
     Indication: MULTIPLE MYELOMA
     Dosage: 1.3 MG/M2, CYCLIC
     Route: 042
     Dates: start: 20101229, end: 20101229
  2. DEXAMETHASONE [Suspect]
     Indication: MULTIPLE MYELOMA
     Dosage: 40 MG, CYCLIC
     Route: 048
     Dates: start: 20101229

REACTIONS (6)
  - RENAL FAILURE ACUTE [None]
  - LEUKOPENIA [None]
  - HAEMORRHAGIC DIATHESIS [None]
  - HYPERVISCOSITY SYNDROME [None]
  - DYSPNOEA [None]
  - TUMOUR LYSIS SYNDROME [None]
